FAERS Safety Report 4637003-8 (Version None)
Quarter: 2005Q2

REPORT INFORMATION
  Report Type: 
  Country: None (occurrence: None)
  Receive Date: 20050414
  Receipt Date: 20050408
  Transmission Date: 20051028
  Serious: Yes (Other)
  Sender: FDA-Public Use
  Company Number: 231324K05USA

PATIENT
  Sex: Female

DRUGS (2)
  1. REBIF [Suspect]
     Indication: MULTIPLE SCLEROSIS
     Dosage: 33 MCG
     Dates: start: 20050101, end: 20050404
  2. FORTEO [Concomitant]

REACTIONS (7)
  - CHILLS [None]
  - FEELING COLD [None]
  - LYMPHOMA [None]
  - PRURITUS [None]
  - RASH [None]
  - SHOCK [None]
  - TREMOR [None]
